FAERS Safety Report 22588769 (Version 1)
Quarter: 2023Q2

REPORT INFORMATION
  Report Type: Spontaneous
  Country: None (occurrence: CN)
  Receive Date: 20230612
  Receipt Date: 20230612
  Transmission Date: 20230722
  Serious: No
  Sender: FDA-Public Use
  Company Number: CN-Stason Pharmaceuticals, Inc.-2142580

PATIENT
  Age: 80 Year
  Sex: Male

DRUGS (1)
  1. BICALUTAMIDE [Suspect]
     Active Substance: BICALUTAMIDE
     Indication: Prostate cancer
     Route: 065
     Dates: start: 201804

REACTIONS (2)
  - Neuroendocrine carcinoma of prostate [Unknown]
  - Transdifferentiation of neoplasm [Unknown]
